FAERS Safety Report 6058710-9 (Version None)
Quarter: 2009Q1

REPORT INFORMATION
  Report Type: 
  Country: None (occurrence: None)
  Receive Date: 20090128
  Receipt Date: 20081209
  Transmission Date: 20090719
  Serious: Yes (Other)
  Sender: FDA-Public Use
  Company Number: 8041265

PATIENT
  Age: 41 Year
  Sex: Female

DRUGS (4)
  1. PREDNISOLONE [Suspect]
     Dates: start: 20010101
  2. INFLIXIMAB [Suspect]
     Indication: RHEUMATOID ARTHRITIS
     Dates: start: 20010101, end: 20040101
  3. FOLIC ACID [Concomitant]
  4. METHOTREXATE [Suspect]
     Dates: start: 20010101, end: 20040101

REACTIONS (5)
  - ANTINUCLEAR ANTIBODY INCREASED [None]
  - HEPATIC NECROSIS [None]
  - HEPATITIS [None]
  - PERITONEAL FIBROSIS [None]
  - SMOOTH MUSCLE ANTIBODY POSITIVE [None]
